FAERS Safety Report 16351996 (Version 1)
Quarter: 2019Q2

REPORT INFORMATION
  Report Type: Spontaneous
  Country: IE (occurrence: IE)
  Receive Date: 20190524
  Receipt Date: 20190524
  Transmission Date: 20190711
  Serious: Yes (Other)
  Sender: FDA-Public Use
  Company Number: IE-ACCORD-129130

PATIENT
  Sex: Female

DRUGS (1)
  1. SERTRALINE [Suspect]
     Active Substance: SERTRALINE HYDROCHLORIDE
     Indication: PRODUCT USED FOR UNKNOWN INDICATION
     Dosage: ALSO TAKEN 50 MG FOR 3 MONTHS
     Route: 048

REACTIONS (3)
  - Hallucinations, mixed [Unknown]
  - Paranoia [Unknown]
  - Thinking abnormal [Unknown]
